FAERS Safety Report 12792368 (Version 2)
Quarter: 2017Q2

REPORT INFORMATION
  Report Type: Spontaneous
  Country: US (occurrence: US)
  Receive Date: 20160929
  Receipt Date: 20170404
  Transmission Date: 20170830
  Serious: No
  Sender: FDA-Public Use
  Company Number: US-JNJFOC-20160917955

PATIENT
  Sex: Male

DRUGS (2)
  1. RISPERDAL [Suspect]
     Active Substance: RISPERIDONE
     Indication: SCHIZOPHRENIA
     Route: 048
     Dates: start: 2007, end: 201511
  2. RISPERDAL [Suspect]
     Active Substance: RISPERIDONE
     Indication: BIPOLAR DISORDER
     Route: 048
     Dates: start: 2007, end: 201511

REACTIONS (9)
  - Hyperprolactinaemia [Unknown]
  - Hyperglycaemia [Unknown]
  - Extrapyramidal disorder [Unknown]
  - Dry eye [Unknown]
  - Gynaecomastia [Unknown]
  - Galactorrhoea [Unknown]
  - Dry mouth [Unknown]
  - Abnormal weight gain [Unknown]
  - Dry skin [Unknown]

NARRATIVE: CASE EVENT DATE: 2008
